FAERS Safety Report 11810997 (Version 1)
Quarter: 2015Q4

REPORT INFORMATION
  Report Type: Spontaneous
  Country: None (occurrence: US)
  Receive Date: 20151208
  Receipt Date: 20151208
  Transmission Date: 20160305
  Serious: Yes (Other)
  Sender: FDA-Public Use
  Company Number: US-INVAGEN PHARMACEUTICALS, INC.-1045189

PATIENT

DRUGS (1)
  1. FOSINOPRIL SODIUM. [Suspect]
     Active Substance: FOSINOPRIL SODIUM
     Route: 048

REACTIONS (4)
  - Pharyngeal oedema [Unknown]
  - Lip swelling [Unknown]
  - Swollen tongue [Unknown]
  - Mouth swelling [Unknown]
